FAERS Safety Report 4707283-9 (Version None)
Quarter: 2005Q3

REPORT INFORMATION
  Report Type: 
  Country: None (occurrence: None)
  Receive Date: 20050701
  Receipt Date: 20050617
  Transmission Date: 20060218
  Serious: Yes (Life-Threatening, Hospitalization)
  Sender: FDA-Public Use
  Company Number: 215698

PATIENT
  Age: 48 Year
  Sex: Female
  Weight: 57 kg

DRUGS (7)
  1. HERCEPTIN [Suspect]
     Indication: BREAST CANCER
     Dosage: 455 MG, SINGLE, INTRAVENOUS
     Route: 042
     Dates: start: 20050601, end: 20050602
  2. DOCETAXEL (DOCETAXEL) [Suspect]
     Indication: BREAST CANCER
     Dosage: 125 MG, Q3W, INTRAVENOUS
     Route: 042
     Dates: start: 20050601, end: 20050602
  3. CARBOPLATIN [Suspect]
     Indication: BREAST CANCER
     Dosage: 780 MG, Q3W, INTRAVENOUS
     Route: 042
     Dates: start: 20050601, end: 20050602
  4. ZINC/MAG/CALCIUM (CALCIUM NOS, MAGNESIUM NOS, ZINC NOS) [Concomitant]
  5. VITAMIN C (ASCORBIC ACID) [Concomitant]
  6. ZOVIRAX [Concomitant]
  7. TYLENOL [Concomitant]

REACTIONS (8)
  - CAECITIS [None]
  - CLOSTRIDIAL INFECTION [None]
  - FEBRILE NEUTROPENIA [None]
  - LEG AMPUTATION [None]
  - NECROTISING FASCIITIS [None]
  - NEUTROPENIC COLITIS [None]
  - PAIN [None]
  - PHARYNGOLARYNGEAL PAIN [None]
